FAERS Safety Report 9908813 (Version 2)
Quarter: 2014Q1

REPORT INFORMATION
  Report Type: Spontaneous
  Country: US (occurrence: US)
  Receive Date: 20140219
  Receipt Date: 20140311
  Transmission Date: 20141002
  Serious: Yes (Death, Hospitalization)
  Sender: FDA-Public Use
  Company Number: US-BIOMARINAP-US-2014-102570

PATIENT
  Sex: Female

DRUGS (1)
  1. ALDURAZYME [Suspect]
     Indication: MUCOPOLYSACCHARIDOSIS I
     Dosage: 0.58 MG/KG, QW
     Route: 042
     Dates: start: 200311, end: 201006

REACTIONS (2)
  - Death [Fatal]
  - Hospitalisation [Unknown]
